FAERS Safety Report 20602489 (Version 1)
Quarter: 2022Q1

REPORT INFORMATION
  Report Type: Spontaneous
  Country: SA (occurrence: SA)
  Receive Date: 20220316
  Receipt Date: 20220316
  Transmission Date: 20220423
  Serious: Yes (Death)
  Sender: FDA-Public Use
  Company Number: SA-HQ SPECIALTY-SA-2022INT000055

PATIENT

DRUGS (3)
  1. CISPLATIN [Suspect]
     Active Substance: CISPLATIN
     Dosage: 75 MG/M2 (DAYS 1 AND 22) FOR TWO CYCLES
     Route: 065
  2. DOCETAXEL [Suspect]
     Active Substance: DOCETAXEL
     Indication: Nasopharyngeal cancer
     Dosage: 75 MG/M2 (CYCLE 1, DAYS 1 AND 22)
     Route: 065
  3. DOCETAXEL [Suspect]
     Active Substance: DOCETAXEL
     Dosage: 75 MG/M2 (CYCLE 2, DAYS 1 AND 22)
     Route: 065

REACTIONS (1)
  - Death [Fatal]
